FAERS Safety Report 5332912-9 (Version None)
Quarter: 2007Q2

REPORT INFORMATION
  Report Type: 
  Country: None (occurrence: None)
  Receive Date: 20070521
  Receipt Date: 20070503
  Transmission Date: 20071010
  Serious: Yes (Life-Threatening, Other)
  Sender: FDA-Public Use
  Company Number: 2007US000693

PATIENT
  Age: 10 Year
  Sex: Female

DRUGS (2)
  1. FK506 OINTMENT(TACROLIMUS) OINTMENT [Suspect]
     Indication: PSORIASIS
     Dosage: BID, TOPICAL
     Route: 061
     Dates: start: 20020614
  2. BACTRIM (TRIMETHOPRIM) [Concomitant]

REACTIONS (1)
  - SPINAL CORD NEOPLASM [None]
